FAERS Safety Report 15719683 (Version 1)
Quarter: 2018Q4

REPORT INFORMATION
  Report Type: Spontaneous
  Country: GB (occurrence: GB)
  Receive Date: 20181213
  Receipt Date: 20181213
  Transmission Date: 20190205
  Serious: Yes (Other)
  Sender: FDA-Public Use
  Company Number: GB-PFIZER INC-2018510174

PATIENT
  Age: 52 Year
  Sex: Female
  Weight: 76 kg

DRUGS (6)
  1. CHLORAMPHENICOL [Concomitant]
     Active Substance: CHLORAMPHENICOL
     Dosage: AS NEEDED (1-2 DROPS AS DIRECTED)
     Dates: start: 20180824, end: 20180830
  2. LEVETIRACETAM. [Concomitant]
     Active Substance: LEVETIRACETAM
     Dosage: 4 DF, 1X/DAY
     Dates: start: 20180718
  3. LEVOTHYROXINE. [Concomitant]
     Active Substance: LEVOTHYROXINE
     Dosage: 1 DF, 1X/DAY
     Dates: start: 20180718
  4. LISINOPRIL. [Concomitant]
     Active Substance: LISINOPRIL
     Dosage: 1 DF, 1X/DAY
     Dates: start: 20180718
  5. ADCAL [CALCIUM CARBONATE] [Concomitant]
     Dosage: 2 DF, 1X/DAY
     Dates: start: 20180718
  6. CLINDAMYCIN HCL [Suspect]
     Active Substance: CLINDAMYCIN HYDROCHLORIDE
     Dosage: 600 MG, 1X/DAY
     Dates: start: 20181107, end: 20181114

REACTIONS (3)
  - Swollen tongue [Recovered/Resolved]
  - Lip swelling [Unknown]
  - Rash [Unknown]

NARRATIVE: CASE EVENT DATE: 20181115
